FAERS Safety Report 12646038 (Version 2)
Quarter: 2016Q3

REPORT INFORMATION
  Report Type: Spontaneous
  Country: US (occurrence: US)
  Receive Date: 20160811
  Receipt Date: 20160831
  Transmission Date: 20161109
  Serious: Yes (Death, Hospitalization)
  Sender: FDA-Public Use
  Company Number: US-BAUSCH-BL-2016-019101

PATIENT
  Age: 56 Year
  Sex: Male

DRUGS (1)
  1. XIFAXAN [Suspect]
     Active Substance: RIFAXIMIN
     Indication: HEPATIC ENCEPHALOPATHY
     Route: 048
     Dates: start: 201606

REACTIONS (4)
  - Sepsis [Fatal]
  - Blood bilirubin decreased [Unknown]
  - Hepatic encephalopathy [Fatal]
  - Pneumonia [Fatal]

NARRATIVE: CASE EVENT DATE: 20160617
